FAERS Safety Report 7936175-7 (Version None)
Quarter: 2011Q4

REPORT INFORMATION
  Report Type: 
  Country: None (occurrence: None)
  Receive Date: 20111123
  Receipt Date: 20111118
  Transmission Date: 20120403
  Serious: Yes (Other)
  Sender: FDA-Public Use
  Company Number: GB-PFIZER INC-2011284109

PATIENT
  Age: 42 Year
  Sex: Female

DRUGS (1)
  1. VARENICLINE TARTRATE [Suspect]
     Dosage: UNK
     Route: 048
     Dates: start: 20111010, end: 20110101

REACTIONS (6)
  - HYPOAESTHESIA [None]
  - MOBILITY DECREASED [None]
  - BALANCE DISORDER [None]
  - GRIP STRENGTH DECREASED [None]
  - COORDINATION ABNORMAL [None]
  - PARAESTHESIA [None]
